FAERS Safety Report 9925883 (Version 1)
Quarter: 2014Q1

REPORT INFORMATION
  Report Type: Report from Study
  Country: GB (occurrence: GB)
  Receive Date: 20140226
  Receipt Date: 20140226
  Transmission Date: 20141002
  Serious: Yes (Life-Threatening)
  Sender: FDA-Public Use
  Company Number: GB-PFIZER INC-2014053436

PATIENT
  Age: 70 Year
  Sex: Female

DRUGS (1)
  1. IBUPROFEN [Suspect]
     Indication: OSTEOARTHRITIS
     Dosage: 600 MG, EVERY 3 DAYS
     Route: 048
     Dates: start: 20120924

REACTIONS (1)
  - Acute myocardial infarction [Recovered/Resolved]
